FAERS Safety Report 8564894-0 (Version None)
Quarter: 2012Q3

REPORT INFORMATION
  Report Type: 
  Country: None (occurrence: None)
  Receive Date: 20120803
  Receipt Date: 20120724
  Transmission Date: 20120928
  Serious: Yes (Hospitalization)
  Sender: FDA-Public Use
  Company Number: US-ABBOTT-12P-163-0959384-00

PATIENT
  Sex: Female
  Weight: 90.8 kg

DRUGS (5)
  1. BYSTOLIC [Concomitant]
     Indication: BLOOD PRESSURE
  2. SYNTHROID [Concomitant]
     Indication: THYROID DISORDER
  3. OTC VITAMINS [Concomitant]
     Indication: PRODUCT USED FOR UNKNOWN INDICATION
  4. HUMIRA [Suspect]
     Indication: ANKYLOSING SPONDYLITIS
     Dates: start: 20110201
  5. GLIPIZIDE [Concomitant]
     Indication: TYPE 2 DIABETES MELLITUS
     Dates: start: 20120201

REACTIONS (10)
  - INJECTION SITE EXTRAVASATION [None]
  - THIRST [None]
  - BLOOD POTASSIUM DECREASED [None]
  - POLLAKIURIA [None]
  - ELECTROCARDIOGRAM ABNORMAL [None]
  - BLOOD GLUCOSE INCREASED [None]
  - TYPE 2 DIABETES MELLITUS [None]
  - DEHYDRATION [None]
  - INJECTION SITE PAIN [None]
  - DYSPHONIA [None]
